FAERS Safety Report 6922897-3 (Version None)
Quarter: 2010Q3

REPORT INFORMATION
  Report Type: 
  Country: None (occurrence: None)
  Receive Date: 20100813
  Receipt Date: 20100805
  Transmission Date: 20110219
  Serious: Yes (Hospitalization)
  Sender: FDA-Public Use
  Company Number: JP-ABBOTT-10P-087-0661835-00

PATIENT
  Age: 71 Year
  Sex: Female

DRUGS (3)
  1. CEFZON [Suspect]
     Indication: PRODUCT USED FOR UNKNOWN INDICATION
     Route: 048
     Dates: start: 20100721, end: 20100724
  2. EMPYNASE [Suspect]
     Indication: PRODUCT USED FOR UNKNOWN INDICATION
     Route: 048
     Dates: start: 20100721, end: 20100724
  3. PABRON S [Suspect]
     Indication: PRODUCT USED FOR UNKNOWN INDICATION
     Route: 048
     Dates: start: 20100724, end: 20100725

REACTIONS (3)
  - ERYTHEMA [None]
  - PAROTID GLAND ENLARGEMENT [None]
  - PYREXIA [None]
